FAERS Safety Report 23409808 (Version 4)
Quarter: 2024Q2

REPORT INFORMATION
  Report Type: Spontaneous
  Country: US (occurrence: US)
  Receive Date: 20240117
  Receipt Date: 20240503
  Transmission Date: 20240716
  Serious: Yes (Hospitalization, Other)
  Sender: FDA-Public Use
  Company Number: US-PFIZER INC-202400015573

PATIENT
  Age: 66 Year
  Sex: Female

DRUGS (7)
  1. IBRANCE [Suspect]
     Active Substance: PALBOCICLIB
     Dosage: 125 MG CAPSULE TAKE BY MOUTH 1 CAPSULE (125MG) DAILY 21 DAYS ON AND 7 DAYS OFF
     Route: 048
     Dates: start: 20240104
  2. IBRANCE [Suspect]
     Active Substance: PALBOCICLIB
     Dosage: 1 CAPSULE BY MOUTH DAILY 21 DAYS ON AND 7 DAYS OFF
     Route: 048
  3. ADVIL [Concomitant]
     Active Substance: IBUPROFEN
     Dosage: UNK
  4. HAIR, SKIN + NAILS [BIOTIN] [Concomitant]
     Dosage: UNK
  5. MIRALAX [Concomitant]
     Active Substance: POLYETHYLENE GLYCOL 3350
     Dosage: UNK
  6. TYLENOL [Concomitant]
     Active Substance: ACETAMINOPHEN
     Dosage: UNK
  7. DEXAMETHASONE [Concomitant]
     Active Substance: DEXAMETHASONE
     Dosage: UNK

REACTIONS (8)
  - Nephrolithiasis [Recovering/Resolving]
  - Neoplasm progression [Unknown]
  - Fatigue [Not Recovered/Not Resolved]
  - Alopecia [Not Recovered/Not Resolved]
  - Somnolence [Not Recovered/Not Resolved]
  - Cough [Unknown]
  - Dyspnoea [Unknown]
  - Sinus headache [Recovering/Resolving]

NARRATIVE: CASE EVENT DATE: 20240101
